FAERS Safety Report 23058002 (Version 2)
Quarter: 2023Q4

REPORT INFORMATION
  Report Type: Spontaneous
  Country: BR (occurrence: BR)
  Receive Date: 20231012
  Receipt Date: 20231205
  Transmission Date: 20240110
  Serious: Yes (Death, Hospitalization, Other)
  Sender: FDA-Public Use
  Company Number: BR-SA-SAC20231011001066

PATIENT
  Age: 1 Year
  Sex: Female
  Weight: 9.7 kg

DRUGS (1)
  1. MYOZYME [Suspect]
     Active Substance: ALGLUCOSIDASE ALFA
     Indication: Glycogen storage disease type II
     Dosage: 4 DF, Q15D
     Route: 042
     Dates: start: 20221101, end: 20230801

REACTIONS (5)
  - Bacterial toxaemia [Fatal]
  - Nosocomial infection [Fatal]
  - Pneumonia [Fatal]
  - Glycogen storage disease type II [Fatal]
  - Condition aggravated [Fatal]

NARRATIVE: CASE EVENT DATE: 20230816
